FAERS Safety Report 7107970-1 (Version None)
Quarter: 2010Q4

REPORT INFORMATION
  Report Type: 
  Country: None (occurrence: None)
  Receive Date: 20101105
  Receipt Date: 20101026
  Transmission Date: 20110411
  Serious: Yes (Disabling)
  Sender: FDA-Public Use
  Company Number: 2010SP057290

PATIENT
  Age: 23 Year
  Sex: Male

DRUGS (1)
  1. SAPHRIS [Suspect]
     Indication: SCHIZOPHRENIA
     Dosage: 10 MG;Q12H;SL
     Route: 060
     Dates: start: 20100723

REACTIONS (8)
  - AMNESIA [None]
  - DIZZINESS [None]
  - FEAR [None]
  - HALLUCINATION, AUDITORY [None]
  - MIDDLE INSOMNIA [None]
  - PAIN IN EXTREMITY [None]
  - TREMOR [None]
  - WEIGHT INCREASED [None]
